FAERS Safety Report 9797226 (Version 1)
Quarter: 2014Q1

REPORT INFORMATION
  Report Type: Spontaneous
  Country: US (occurrence: US)
  Receive Date: 20140106
  Receipt Date: 20140106
  Transmission Date: 20141002
  Serious: Yes (Other)
  Sender: FDA-Public Use
  Company Number: ALCN2013US006416

PATIENT
  Age: 69 Year
  Sex: Female

DRUGS (1)
  1. DUREZOL [Suspect]
     Indication: CATARACT OPERATION
     Dosage: 1 GTT, BID
     Route: 047

REACTIONS (1)
  - Blood pressure increased [Recovered/Resolved]
